FAERS Safety Report 12197627 (Version 1)
Quarter: 2016Q1

REPORT INFORMATION
  Report Type: Spontaneous
  Country: US (occurrence: US)
  Receive Date: 20160322
  Receipt Date: 20160322
  Transmission Date: 20160526
  Serious: No
  Sender: FDA-Public Use
  Company Number: US-009507513-1603USA008682

PATIENT
  Age: 17 Year
  Sex: Female
  Weight: 70.3 kg

DRUGS (1)
  1. NEXPLANON [Suspect]
     Active Substance: ETONOGESTREL
     Indication: CONTRACEPTION
     Dosage: UNK, 3 YEAR IMPLANT IN THE LEFT ARM
     Route: 059
     Dates: start: 20160119

REACTIONS (3)
  - Weight decreased [Unknown]
  - Metrorrhagia [Unknown]
  - Haemorrhage [Unknown]

NARRATIVE: CASE EVENT DATE: 2016
